FAERS Safety Report 15653651 (Version 1)
Quarter: 2018Q4

REPORT INFORMATION
  Report Type: Spontaneous
  Country: US (occurrence: US)
  Receive Date: 20181122
  Receipt Date: 20181122
  Transmission Date: 20190205
  Serious: Yes (Other)
  Sender: FDA-Public Use
  Company Number: None

PATIENT
  Age: 69 Year
  Sex: Male
  Weight: 99 kg

DRUGS (7)
  1. ULORIC [Suspect]
     Active Substance: FEBUXOSTAT
     Indication: GOUT
     Dosage: ?          QUANTITY:90 TABLET(S);?
     Route: 048
     Dates: start: 20181005, end: 20181109
  2. ACETAMINOPHEN. [Concomitant]
     Active Substance: ACETAMINOPHEN
  3. VALIUM [Concomitant]
     Active Substance: DIAZEPAM
  4. GEMFIBROZIL. [Concomitant]
     Active Substance: GEMFIBROZIL
  5. BUPROPION. [Concomitant]
     Active Substance: BUPROPION
  6. AMITRIPTYLINE [Concomitant]
     Active Substance: AMITRIPTYLINE
  7. METFORMIN [Concomitant]
     Active Substance: METFORMIN HYDROCHLORIDE

REACTIONS (6)
  - Dizziness [None]
  - Muscular weakness [None]
  - Chest discomfort [None]
  - Gait disturbance [None]
  - Headache [None]
  - Hypotonia [None]

NARRATIVE: CASE EVENT DATE: 20181017
